FAERS Safety Report 15218492 (Version 1)
Quarter: 2018Q3

REPORT INFORMATION
  Report Type: Report from Study
  Country: US (occurrence: US)
  Receive Date: 20180730
  Receipt Date: 20180730
  Transmission Date: 20181010
  Serious: Yes (Hospitalization, Other)
  Sender: FDA-Public Use
  Company Number: US-009507513-1711USA007267

PATIENT
  Age: 67 Year
  Sex: Male

DRUGS (12)
  1. PRINIVIL [Concomitant]
     Active Substance: LISINOPRIL
     Dosage: UNK
  2. GABAPENTIN. [Concomitant]
     Active Substance: GABAPENTIN
     Dosage: INCREASED DOSE
     Dates: start: 201801
  3. HEMP [Concomitant]
     Active Substance: HEMP
  4. ASPIRIN. [Concomitant]
     Active Substance: ASPIRIN
     Dosage: 81 MG, UNK
  5. HYDROMORPHONE [Concomitant]
     Active Substance: HYDROMORPHONE
  6. ZOCOR [Concomitant]
     Active Substance: SIMVASTATIN
     Dosage: UNK
  7. CYMBALTA [Concomitant]
     Active Substance: DULOXETINE HYDROCHLORIDE
     Dosage: UNK, HS
  8. IBUPROFEN. [Concomitant]
     Active Substance: IBUPROFEN
     Dosage: UNK, QAM
  9. PEMBROLIZUMAB. [Suspect]
     Active Substance: PEMBROLIZUMAB
     Dosage: STRENGTH: 100MG, EVERY 3 WEEKS; OVER 30 MINUTES
     Route: 042
     Dates: start: 20180326
  10. METHADONE HYDROCHLORIDE. [Concomitant]
     Active Substance: METHADONE HYDROCHLORIDE
     Dosage: 5 MG, UNK
  11. PEMBROLIZUMAB. [Suspect]
     Active Substance: PEMBROLIZUMAB
     Indication: LUNG NEOPLASM MALIGNANT
     Dosage: STRENGTH: 100MG, EVERY 3 WEEKS; OVER 30 MINUTES
     Route: 042
     Dates: start: 20171004
  12. GABAPENTIN. [Concomitant]
     Active Substance: GABAPENTIN
     Dosage: UNK, HS

REACTIONS (17)
  - Ocular hyperaemia [Recovered/Resolved]
  - Eye irritation [Recovered/Resolved]
  - Subcutaneous abscess [Recovered/Resolved]
  - Loss of consciousness [Unknown]
  - Blood iron decreased [Recovered/Resolved]
  - Fatigue [Unknown]
  - Confusional state [Recovering/Resolving]
  - Vision blurred [Recovering/Resolving]
  - Pyrexia [Recovering/Resolving]
  - Spinal disorder [Not Recovered/Not Resolved]
  - Dizziness [Unknown]
  - Neuralgia [Recovering/Resolving]
  - Inappropriate schedule of drug administration [Unknown]
  - Thoracic vertebral fracture [Recovered/Resolved]
  - Adrenal neoplasm [Recovered/Resolved]
  - Blood pressure systolic abnormal [Unknown]
  - Psoriasis [Recovering/Resolving]

NARRATIVE: CASE EVENT DATE: 201711
